FAERS Safety Report 23835798 (Version 1)
Quarter: 2024Q2

REPORT INFORMATION
  Report Type: Spontaneous
  Country: IT (occurrence: IT)
  Receive Date: 20240509
  Receipt Date: 20240509
  Transmission Date: 20240715
  Serious: Yes (Hospitalization)
  Sender: FDA-Public Use
  Company Number: None

PATIENT
  Age: 72 Year
  Sex: Male
  Weight: 80 kg

DRUGS (5)
  1. SERTRALINE [Suspect]
     Active Substance: SERTRALINE HYDROCHLORIDE
     Indication: Delusional disorder, unspecified type
     Dates: start: 20240403, end: 20240406
  2. PERINDOPRIL [Concomitant]
     Active Substance: PERINDOPRIL
     Indication: Hypertension
  3. TAVOR [Concomitant]
     Indication: Mixed anxiety and depressive disorder
     Dosage: AS REQUIRED
  4. AMLODIPINE [Concomitant]
     Active Substance: AMLODIPINE BESYLATE
     Indication: Hypertension
  5. QUETIAPINE [Concomitant]
     Active Substance: QUETIAPINE
     Indication: Delusional disorder, unspecified type

REACTIONS (3)
  - Diarrhoea [Recovering/Resolving]
  - Extrapyramidal disorder [Recovering/Resolving]
  - Blood sodium decreased [Recovered/Resolved]

NARRATIVE: CASE EVENT DATE: 20240406
